FAERS Safety Report 18217735 (Version 1)
Quarter: 2020Q3

REPORT INFORMATION
  Report Type: Spontaneous
  Country: US (occurrence: US)
  Receive Date: 20200831
  Receipt Date: 20200831
  Transmission Date: 20201103
  Serious: Yes (Hospitalization)
  Sender: FDA-Public Use
  Company Number: None

PATIENT
  Age: 79 Year
  Sex: Male
  Weight: 83 kg

DRUGS (1)
  1. WARFARIN (WARFARIN NA (EXELAN) 2MG TAB) [Suspect]
     Active Substance: WARFARIN SODIUM
     Indication: MITRAL VALVE REPLACEMENT
     Route: 048
     Dates: start: 20120404

REACTIONS (8)
  - Haemorrhage [None]
  - Rhinorrhoea [None]
  - International normalised ratio increased [None]
  - Sinus congestion [None]
  - Amnesia [None]
  - Anaemia [None]
  - Cough [None]
  - Extra dose administered [None]

NARRATIVE: CASE EVENT DATE: 20191127
